FAERS Safety Report 4699366-7 (Version None)
Quarter: 2005Q2

REPORT INFORMATION
  Report Type: 
  Country: None (occurrence: None)
  Receive Date: 20050624
  Receipt Date: 20050614
  Transmission Date: 20051028
  Serious: Yes (Other)
  Sender: FDA-Public Use
  Company Number: GB-SANOFI-SYNTHELABO-F01200501013

PATIENT
  Sex: Male
  Weight: 69.4 kg

DRUGS (2)
  1. OXALIPLATIN [Suspect]
     Route: 042
  2. CAPECITABINE [Suspect]
     Dosage: 1800 MG (660 MG/M2 OR 825 MG/M2 OR 1000 MG/M2 FROM MONDAY TO FRIDAY EACH WEEK)
     Route: 048

REACTIONS (2)
  - LOSS OF CONSCIOUSNESS [None]
  - SYNCOPE [None]
